APPROVED DRUG PRODUCT: LIVOSTIN
Active Ingredient: LEVOCABASTINE HYDROCHLORIDE
Strength: EQ 0.05% BASE
Dosage Form/Route: SUSPENSION/DROPS;OPHTHALMIC
Application: N020219 | Product #001
Applicant: NOVARTIS PHARMACEUTICALS CORP
Approved: Nov 10, 1993 | RLD: No | RS: No | Type: DISCN